FAERS Safety Report 5043125-2 (Version None)
Quarter: 2006Q2

REPORT INFORMATION
  Report Type: 
  Country: None (occurrence: None)
  Receive Date: 20060629
  Receipt Date: 20060614
  Transmission Date: 20061013
  Serious: Yes (Hospitalization)
  Sender: FDA-Public Use
  Company Number: 2006PV015582

PATIENT
  Age: 54 Year
  Sex: Female

DRUGS (9)
  1. BYETTA [Suspect]
     Indication: DIABETES MELLITUS NON-INSULIN-DEPENDENT
     Dosage: SEE IMAGE, SC
     Route: 058
     Dates: start: 20021101
  2. BYETTA [Suspect]
     Indication: DIABETES MELLITUS NON-INSULIN-DEPENDENT
     Dosage: SEE IMAGE, SC
     Route: 058
     Dates: start: 20060301
  3. ZOCOR [Concomitant]
  4. GLUCOPHAGE [Concomitant]
  5. LISINOPRIL [Concomitant]
  6. ATIVAN [Concomitant]
  7. PROVIGIL [Concomitant]
  8. LAMICTAL [Concomitant]
  9. RISPERDAL [Concomitant]

REACTIONS (3)
  - ABNORMAL BEHAVIOUR [None]
  - MANIA [None]
  - REFUSAL OF TREATMENT BY PATIENT [None]
